FAERS Safety Report 5237661-3 (Version None)
Quarter: 2007Q1

REPORT INFORMATION
  Report Type: 
  Country: None (occurrence: None)
  Receive Date: 20070214
  Receipt Date: 20070130
  Transmission Date: 20070707
  Serious: Yes (Hospitalization)
  Sender: FDA-Public Use
  Company Number: DE-AMGEN-UK208929

PATIENT
  Age: 66 Year
  Sex: Female

DRUGS (2)
  1. KINERET [Suspect]
     Indication: RHEUMATOID ARTHRITIS
     Route: 065
  2. ADALIMUMAB [Concomitant]
     Route: 065
     Dates: start: 20040401, end: 20041001

REACTIONS (4)
  - ARTHRALGIA [None]
  - FOOT OPERATION [None]
  - MUSCULOSKELETAL PAIN [None]
  - OSTEOARTHRITIS [None]
